FAERS Safety Report 4736194-8 (Version None)
Quarter: 2005Q3

REPORT INFORMATION
  Report Type: 
  Country: None (occurrence: None)
  Receive Date: 20050806
  Receipt Date: 20050801
  Transmission Date: 20060218
  Serious: Yes (Other)
  Sender: FDA-Public Use
  Company Number: PHNU2005DE02730

PATIENT
  Age: 62 Year
  Sex: Female

DRUGS (2)
  1. FEMARA [Suspect]
     Indication: BREAST CANCER METASTATIC
     Dates: start: 20050601
  2. L-THYROXINE [Suspect]

REACTIONS (7)
  - BLOOD PRESSURE INCREASED [None]
  - DRUG INTERACTION [None]
  - FATIGUE [None]
  - HOT FLUSH [None]
  - HYPERHIDROSIS [None]
  - HYPERTENSION [None]
  - TACHYCARDIA PAROXYSMAL [None]
